FAERS Safety Report 8600837-9 (Version None)
Quarter: 2012Q3

REPORT INFORMATION
  Report Type: 
  Country: None (occurrence: None)
  Receive Date: 20120817
  Receipt Date: 20120807
  Transmission Date: 20120928
  Serious: Yes (Other)
  Sender: FDA-Public Use
  Company Number: BR-JNJFOC-20120805599

PATIENT
  Sex: Female
  Weight: 53 kg

DRUGS (9)
  1. REMICADE [Suspect]
     Indication: CROHN'S DISEASE
     Route: 042
     Dates: start: 20100408
  2. REMICADE [Suspect]
     Route: 042
     Dates: start: 20120730
  3. OMEPRAZOLE [Concomitant]
     Route: 048
  4. AZATHIOPRINE SODIUM [Concomitant]
     Route: 048
  5. SULFASALAZINE [Concomitant]
     Route: 048
  6. REMICADE [Suspect]
     Route: 042
     Dates: start: 20120330
  7. FOLIC ACID [Concomitant]
     Route: 048
  8. DIPHENHYDRAMINE HYDROCHLORIDE [Concomitant]
     Indication: PREMEDICATION
     Route: 065
  9. HYDROCORTISONE [Concomitant]
     Indication: PREMEDICATION
     Route: 065

REACTIONS (3)
  - RASH [None]
  - DYSPNOEA [None]
  - INFUSION RELATED REACTION [None]
